FAERS Safety Report 13179004 (Version 1)
Quarter: 2017Q1

REPORT INFORMATION
  Report Type: Spontaneous
  Country: US (occurrence: US)
  Receive Date: 20170202
  Receipt Date: 20170202
  Transmission Date: 20170428
  Serious: Yes (Hospitalization)
  Sender: FDA-Public Use
  Company Number: None

PATIENT
  Age: 56 Year
  Sex: Female
  Weight: 47 kg

DRUGS (3)
  1. DALTEPARIN [Suspect]
     Active Substance: DALTEPARIN
  2. ATIVAN [Concomitant]
     Active Substance: LORAZEPAM
  3. LOMOTIL [Concomitant]
     Active Substance: ATROPINE SULFATE\DIPHENOXYLATE HYDROCHLORIDE

REACTIONS (3)
  - Back pain [None]
  - Nausea [None]
  - Small intestinal obstruction [None]

NARRATIVE: CASE EVENT DATE: 20170131
